FAERS Safety Report 8604418-2 (Version None)
Quarter: 2012Q3

REPORT INFORMATION
  Report Type: 
  Country: None (occurrence: None)
  Receive Date: 20120820
  Receipt Date: 20120810
  Transmission Date: 20120928
  Serious: Yes (Other)
  Sender: FDA-Public Use
  Company Number: BR-JNJFOC-20120806874

PATIENT
  Sex: Female
  Weight: 70 kg

DRUGS (7)
  1. FERROUS SULFATE TAB [Concomitant]
     Route: 065
     Dates: start: 20120301
  2. REMICADE [Suspect]
     Indication: COLITIS
     Route: 042
     Dates: start: 20120703
  3. BROMAZEPAM [Concomitant]
     Indication: SLEEP DISORDER THERAPY
     Route: 065
     Dates: start: 20120301
  4. FLUOXETINE HCL [Concomitant]
     Route: 065
     Dates: start: 20120301
  5. REMICADE [Suspect]
     Route: 042
     Dates: start: 20120717
  6. MESALAMINE [Concomitant]
     Indication: COLITIS
     Route: 048
     Dates: start: 20100101
  7. FOLIC ACID [Concomitant]
     Route: 065
     Dates: start: 20111101

REACTIONS (3)
  - DIARRHOEA [None]
  - HAEMORRHAGE [None]
  - ABDOMINAL PAIN [None]
